FAERS Safety Report 12544340 (Version 3)
Quarter: 2016Q3

REPORT INFORMATION
  Report Type: Spontaneous
  Country: NZ (occurrence: NZ)
  Receive Date: 20160711
  Receipt Date: 20160720
  Transmission Date: 20161109
  Serious: Yes (Other)
  Sender: FDA-Public Use
  Company Number: NZ-BEH-2016070444

PATIENT
  Age: 2 Year
  Sex: Male

DRUGS (2)
  1. PRIVIGEN [Suspect]
     Active Substance: HUMAN IMMUNOGLOBULIN G
     Dosage: UNK, QW
     Route: 042
     Dates: start: 20160513, end: 20160617
  2. PRIVIGEN [Suspect]
     Active Substance: HUMAN IMMUNOGLOBULIN G
     Indication: PROPHYLAXIS AGAINST TRANSPLANT REJECTION
     Dosage: 5 G, UNK
     Route: 042
     Dates: start: 2016

REACTIONS (3)
  - HTLV test positive [Unknown]
  - Immunisation [Unknown]
  - Human T-cell lymphotropic virus infection [Unknown]

NARRATIVE: CASE EVENT DATE: 20160609
